FAERS Safety Report 11200054 (Version 1)
Quarter: 2015Q2

REPORT INFORMATION
  Report Type: Other
  Country: IT (occurrence: IT)
  Receive Date: 20150618
  Receipt Date: 20150618
  Transmission Date: 20150821
  Serious: Yes (Life-Threatening, Other)
  Sender: FDA-Public Use
  Company Number: IT-PALADIN LABS-1040033

PATIENT
  Age: 78 Year
  Sex: Male
  Weight: 94 kg

DRUGS (1)
  1. ANTIZOL [Suspect]
     Active Substance: FOMEPIZOLE
     Indication: ACCIDENTAL POISONING
     Route: 040

REACTIONS (3)
  - Incorrect drug administration duration [Recovered/Resolved]
  - Cardiac failure acute [Recovered/Resolved]
  - Respiratory failure [Recovered/Resolved]
